FAERS Safety Report 10576496 (Version 2)
Quarter: 2015Q2

REPORT INFORMATION
  Report Type: Spontaneous
  Country: US (occurrence: US)
  Receive Date: 20141111
  Receipt Date: 20150608
  Transmission Date: 20150821
  Serious: Yes (Hospitalization, Other)
  Sender: FDA-Public Use
  Company Number: US-JNJFOC-20141104765

PATIENT
  Age: 76 Year
  Sex: Female

DRUGS (13)
  1. HYDROCHLOROTHIAZIDE. [Concomitant]
     Active Substance: HYDROCHLOROTHIAZIDE
  2. METOPROLOL [Concomitant]
     Active Substance: METOPROLOL
     Indication: HYPERTENSION
  3. ALLOPURINOL. [Concomitant]
     Active Substance: ALLOPURINOL
     Indication: CHRONIC LYMPHOCYTIC LEUKAEMIA
  4. LAMOTRIGINE. [Concomitant]
     Active Substance: LAMOTRIGINE
  5. FOLIC ACID. [Concomitant]
     Active Substance: FOLIC ACID
  6. ROPINIROLE. [Concomitant]
     Active Substance: ROPINIROLE
  7. LISINOPRIL. [Concomitant]
     Active Substance: LISINOPRIL
     Indication: HYPERTENSION
  8. LOSARTAN [Concomitant]
     Active Substance: LOSARTAN
     Indication: HYPERTENSION
  9. NEXIUM [Concomitant]
     Active Substance: ESOMEPRAZOLE MAGNESIUM
  10. BIOTIN [Concomitant]
     Active Substance: BIOTIN
  11. IMBRUVICA [Suspect]
     Active Substance: IBRUTINIB
     Indication: CHRONIC LYMPHOCYTIC LEUKAEMIA
     Route: 048
     Dates: start: 20140509
  12. PRAVASTATIN [Concomitant]
     Active Substance: PRAVASTATIN\PRAVASTATIN SODIUM
     Indication: BLOOD CHOLESTEROL ABNORMAL
  13. CITRACAL PLUS D [Concomitant]

REACTIONS (6)
  - Benign neoplasm of eye [Not Recovered/Not Resolved]
  - Diarrhoea [Recovering/Resolving]
  - Seizure [Recovered/Resolved]
  - Contusion [Unknown]
  - White blood cell count decreased [Unknown]
  - Joint swelling [Recovering/Resolving]

NARRATIVE: CASE EVENT DATE: 2014
